FAERS Safety Report 5723602-9 (Version None)
Quarter: 2008Q2

REPORT INFORMATION
  Report Type: 
  Country: None (occurrence: None)
  Receive Date: 20080430
  Receipt Date: 20080425
  Transmission Date: 20081010
  Serious: Yes (Other)
  Sender: FDA-Public Use
  Company Number: FR-BRISTOL-MYERS SQUIBB COMPANY-14166391

PATIENT
  Sex: Male

DRUGS (1)
  1. KENACORT [Suspect]
     Dosage: 60 DOSAGEFORM = 60 INJECTIONS

REACTIONS (3)
  - ADRENAL INSUFFICIENCY [None]
  - DIABETES MELLITUS [None]
  - NEOPLASM MALIGNANT [None]
